FAERS Safety Report 12534666 (Version 1)
Quarter: 2016Q3

REPORT INFORMATION
  Report Type: Spontaneous
  Country: GB (occurrence: None)
  Receive Date: 20160705
  Receipt Date: 20160705
  Transmission Date: 20161109
  Serious: Yes (Other)
  Sender: FDA-Public Use
  Company Number: GB2016K3020SPO

PATIENT
  Age: 51 Year
  Sex: Female
  Weight: 50.8 kg

DRUGS (2)
  1. LIVIAL (TIBOLONE) [Concomitant]
  2. LANSOPRAZOLE GENERIC (LANSOPRAZOLE) UNKNOWN [Suspect]
     Active Substance: LANSOPRAZOLE
     Indication: GASTROOESOPHAGEAL REFLUX DISEASE
     Route: 048
     Dates: end: 20160611

REACTIONS (5)
  - Dyspepsia [None]
  - Cough [None]
  - Throat irritation [None]
  - Abdominal distension [None]
  - Therapy non-responder [None]

NARRATIVE: CASE EVENT DATE: 20160612
